FAERS Safety Report 5087963-9 (Version None)
Quarter: 2006Q3

REPORT INFORMATION
  Report Type: 
  Country: None (occurrence: None)
  Receive Date: 20060727
  Receipt Date: 20060428
  Transmission Date: 20061208
  Serious: Yes (Other)
  Sender: FDA-Public Use
  Company Number: 2006058115

PATIENT

DRUGS (3)
  1. LYRICA [Suspect]
     Indication: ILL-DEFINED DISORDER
  2. AMBIEN [Suspect]
     Indication: INSOMNIA
  3. ALL OTHER THERAPEUTIC PRODUCTS (ALL OTHER THERAPEUTIC PRODUCTS) [Suspect]
     Indication: ILL-DEFINED DISORDER

REACTIONS (2)
  - DRUG INTERACTION [None]
  - TREMOR [None]
